FAERS Safety Report 15448418 (Version 1)
Quarter: 2018Q3

REPORT INFORMATION
  Report Type: Spontaneous
  Country: US (occurrence: US)
  Receive Date: 20180929
  Receipt Date: 20180929
  Transmission Date: 20181010
  Serious: No
  Sender: FDA-Public Use
  Company Number: US-009507513-1809USA005067

PATIENT
  Sex: Male

DRUGS (1)
  1. ZEPATIER [Suspect]
     Active Substance: ELBASVIR\GRAZOPREVIR
     Indication: HEPATITIS C
     Dosage: L TABLET DAILY FOR 12 WEEKS
     Route: 048

REACTIONS (2)
  - Hepatitis C virus test positive [Not Recovered/Not Resolved]
  - Therapy non-responder [Not Recovered/Not Resolved]
